FAERS Safety Report 10264697 (Version 1)
Quarter: 2014Q2

REPORT INFORMATION
  Report Type: Spontaneous
  Country: US (occurrence: US)
  Receive Date: 20140627
  Receipt Date: 20140627
  Transmission Date: 20141212
  Serious: No
  Sender: FDA-Public Use
  Company Number: US-GLAXOSMITHKLINE-A1071934A

PATIENT
  Age: 48 Year
  Sex: Female

DRUGS (2)
  1. TAFINLAR [Suspect]
     Indication: NEOPLASM MALIGNANT
     Dosage: 75MG UNKNOWN
     Route: 065
     Dates: start: 20131002
  2. UNKNOWN MEDICATION [Suspect]
     Route: 065

REACTIONS (1)
  - Toxicity to various agents [Unknown]
